FAERS Safety Report 5500585-8 (Version None)
Quarter: 2007Q4

REPORT INFORMATION
  Report Type: 
  Country: None (occurrence: None)
  Receive Date: 20071018
  Receipt Date: 20070502
  Transmission Date: 20080405
  Serious: Yes (Other)
  Sender: FDA-Public Use
  Company Number: 2007036833

PATIENT
  Age: 54 Year
  Sex: Female

DRUGS (1)
  1. NEURONTIN [Suspect]
     Indication: NEUROPATHY PERIPHERAL

REACTIONS (5)
  - AMNESIA [None]
  - ANXIETY [None]
  - BLOOD PRESSURE INCREASED [None]
  - NAUSEA [None]
  - PALPITATIONS [None]
